FAERS Safety Report 16590532 (Version 1)
Quarter: 2019Q3

REPORT INFORMATION
  Report Type: Spontaneous
  Country: US (occurrence: US)
  Receive Date: 20190717
  Receipt Date: 20190717
  Transmission Date: 20191004
  Serious: Yes (Other)
  Sender: FDA-Public Use
  Company Number: None

PATIENT
  Age: 74 Year
  Sex: Male
  Weight: 73.8 kg

DRUGS (2)
  1. ATORVASTATIN DR REDDYS [Suspect]
     Active Substance: ATORVASTATIN CALCIUM
     Indication: BLOOD CHOLESTEROL
     Dosage: ?          QUANTITY:1 TABLET(S);?
     Route: 048
  2. AREDS 2 OPHTHALMIC VITAMIN [Concomitant]

REACTIONS (4)
  - Deafness [None]
  - Nausea [None]
  - Lethargy [None]
  - Vertigo [None]

NARRATIVE: CASE EVENT DATE: 20190225
